FAERS Safety Report 9012153 (Version 3)
Quarter: 2013Q2

REPORT INFORMATION
  Report Type: Spontaneous
  Country: US (occurrence: None)
  Receive Date: 20121227
  Receipt Date: 20130423
  Transmission Date: 20140414
  Serious: Yes (Hospitalization)
  Sender: FDA-Public Use
  Company Number: 2012-8334

PATIENT
  Age: 11 Year
  Sex: Female

DRUGS (7)
  1. INCRELEX [Suspect]
     Indication: PRIMARY INSULIN LIKE GROWTH FACTOR-1 DEFICIENCY
     Dosage: 128 UG/KG (64 UG/KG, 2 IN 1 D), SUBCUTANEOUS
     Route: 058
     Dates: start: 20110520, end: 20120308
  2. CELEXA [Concomitant]
  3. LUPRON DEPOT (LEUPRORELIN ACETATE) [Concomitant]
  4. WELLBUTRIN (BUPROPION) [Concomitant]
  5. ZOLOFT (SERTRALINE HYDROCHLORIDE) [Concomitant]
  6. OXYBUTYNIN (OXYBUTYNIN) [Concomitant]
  7. FLONASE (FLUTICASONE PROPIONATE) [Concomitant]

REACTIONS (6)
  - Constipation [None]
  - Encopresis [None]
  - Abdominal pain [None]
  - Treatment failure [None]
  - Diarrhoea [None]
  - Micturition urgency [None]
